FAERS Safety Report 12947251 (Version 1)
Quarter: 2016Q4

REPORT INFORMATION
  Report Type: Spontaneous
  Country: DE (occurrence: DE)
  Receive Date: 20161116
  Receipt Date: 20161116
  Transmission Date: 20170207
  Serious: Yes (Death, Hospitalization, Other)
  Sender: FDA-Public Use
  Company Number: DE-TEVA-712914ACC

PATIENT
  Age: 64 Year
  Sex: Female

DRUGS (2)
  1. RITUXIMAB [Suspect]
     Active Substance: RITUXIMAB
     Indication: CHRONIC LYMPHOCYTIC LEUKAEMIA
     Route: 065
     Dates: start: 201308, end: 201310
  2. BENDAMUSTINE HYDROCHLORIDE. [Suspect]
     Active Substance: BENDAMUSTINE HYDROCHLORIDE
     Indication: CHRONIC LYMPHOCYTIC LEUKAEMIA
     Dosage: (TWO CYCLES)
     Route: 042
     Dates: start: 201308, end: 201310

REACTIONS (4)
  - Multiple organ dysfunction syndrome [Fatal]
  - Langerhans^ cell histiocytosis [Unknown]
  - Cardiac failure [Unknown]
  - Pancytopenia [Unknown]
